FAERS Safety Report 13828261 (Version 1)
Quarter: 2020Q3

REPORT INFORMATION
  Report Type: Spontaneous
  Country: ES (occurrence: BR)
  Receive Date: 20170803
  Receipt Date: 20170803
  Transmission Date: 20201105
  Serious: Yes (Death, Other)
  Sender: FDA-Public Use
  Company Number: ES-ROCHE-1954507

PATIENT
  Age: 71 Year
  Sex: Male

DRUGS (1)
  1. ALECTINIB. [Suspect]
     Active Substance: ALECTINIB
     Indication: NON-SMALL CELL LUNG CANCER
     Route: 065
     Dates: start: 20170601, end: 20170606

REACTIONS (1)
  - Angiopathy [Fatal]
